FAERS Safety Report 11366580 (Version 1)
Quarter: 2015Q3

REPORT INFORMATION
  Report Type: Spontaneous
  Country: US (occurrence: US)
  Receive Date: 20150811
  Receipt Date: 20150811
  Transmission Date: 20151125
  Serious: No
  Sender: FDA-Public Use
  Company Number: US-ELI_LILLY_AND_COMPANY-US201303001397

PATIENT
  Sex: Male
  Weight: 93 kg

DRUGS (7)
  1. LIPITOR [Concomitant]
     Active Substance: ATORVASTATIN CALCIUM
     Dosage: 40 MG, QD
     Route: 048
  2. FUROSEMIDE. [Concomitant]
     Active Substance: FUROSEMIDE
     Dosage: 40 MG, QD
     Route: 048
  3. OXYCODONE HCL [Concomitant]
     Active Substance: OXYCODONE HYDROCHLORIDE
     Dosage: UNK, PRN
     Route: 048
  4. AXIRON [Suspect]
     Active Substance: TESTOSTERONE
     Indication: BLOOD TESTOSTERONE DECREASED
     Dosage: 60 MG, QD
  5. KADIAN [Concomitant]
     Active Substance: MORPHINE SULFATE
     Dosage: 100 MG, QD
  6. NOVOLIN [Concomitant]
     Active Substance: INSULIN HUMAN
     Dosage: 30 MG, BID
  7. INSULIN [Concomitant]
     Active Substance: INSULIN NOS

REACTIONS (1)
  - Incorrect dose administered [Unknown]
